FAERS Safety Report 23239241 (Version 1)
Quarter: 2023Q4

REPORT INFORMATION
  Report Type: Spontaneous
  Country: CN (occurrence: CN)
  Receive Date: 20231129
  Receipt Date: 20231129
  Transmission Date: 20240110
  Serious: Yes (Life-Threatening, Hospitalization, Other)
  Sender: FDA-Public Use
  Company Number: CN-BoehringerIngelheim-2023-BI-274731

PATIENT
  Age: 61 Year
  Sex: Male
  Weight: 80 kg

DRUGS (3)
  1. ALTEPLASE [Suspect]
     Active Substance: ALTEPLASE
     Indication: Cerebral infarction
     Route: 042
     Dates: start: 20231113, end: 20231115
  2. ALTEPLASE [Suspect]
     Active Substance: ALTEPLASE
     Indication: Hemiparesis
     Route: 042
     Dates: start: 20231113, end: 20231115
  3. ALTEPLASE [Suspect]
     Active Substance: ALTEPLASE
     Indication: Cerebral haemorrhage
     Route: 065

REACTIONS (5)
  - Cerebral haemorrhage [Unknown]
  - Pneumonia [Unknown]
  - Headache [Unknown]
  - Nausea [Unknown]
  - Vomiting [Unknown]

NARRATIVE: CASE EVENT DATE: 20231113
